FAERS Safety Report 5002900-0 (Version None)
Quarter: 2006Q2

REPORT INFORMATION
  Report Type: 
  Country: None (occurrence: None)
  Receive Date: 20060512
  Receipt Date: 20060427
  Transmission Date: 20061013
  Serious: Yes (Hospitalization)
  Sender: FDA-Public Use
  Company Number: US200604004736

PATIENT
  Age: 33 Year
  Sex: Male

DRUGS (2)
  1. ZYPREXA [Suspect]
     Indication: SCHIZOAFFECTIVE DISORDER
     Dosage: ORAL
     Route: 048
  2. INSULIN [Concomitant]

REACTIONS (2)
  - DIABETIC KETOACIDOSIS [None]
  - PANCREATITIS HAEMORRHAGIC [None]
